FAERS Safety Report 6145225-2 (Version None)
Quarter: 2009Q2

REPORT INFORMATION
  Report Type: 
  Country: None (occurrence: None)
  Receive Date: 20090406
  Receipt Date: 20090325
  Transmission Date: 20091009
  Serious: Yes (Life-Threatening, Hospitalization)
  Sender: FDA-Public Use
  Company Number: US-SANOFI-SYNTHELABO-D01200900592

PATIENT
  Sex: Female
  Weight: 57 kg

DRUGS (14)
  1. CLOPIDOGREL [Suspect]
     Indication: ACUTE CORONARY SYNDROME
     Dosage: 300 MG (+PLACEBO) D1 FOLLOWED BY 75 MG (+PLACEBO) D2 TO D7; 75 MG FROM D8 TO 30
     Route: 048
  2. LOVENOX [Concomitant]
  3. HEPARIN [Concomitant]
  4. CLOPIDOGREL [Suspect]
     Indication: ACUTE CORONARY SYNDROME
     Dosage: 600 MG LD D1 FOLLOWED BY 150 MG FROM D2 TO D7; 75 MG FROM D8 TO 30
     Route: 048
     Dates: start: 20090111
  5. CLOPIDOGREL [Suspect]
     Dosage: 600 MG LD D1 FOLLOWED BY 150 MG FROM D2 TO D7; 75 MG FROM D8 TO 30
     Route: 048
     Dates: start: 20090115
  6. ASA LOW DOSE [Concomitant]
     Indication: ACUTE CORONARY SYNDROME
     Dosage: AT LEAST 300 MG D1; 75-100 MG FROM D2 TO D30
     Route: 048
     Dates: start: 20090111
  7. COMBIVENT [Concomitant]
  8. PROPOFOL [Concomitant]
  9. HYDROCHLOROTHIAZIDE [Concomitant]
  10. LOPRESSOR [Concomitant]
  11. NEXIUM [Concomitant]
     Dosage: 40 MG
     Route: 065
  12. NORVASC [Concomitant]
     Dosage: 2.5 MG
     Route: 065
  13. ZETIA [Concomitant]
     Dosage: 10 MG
     Route: 065
  14. ZOCOR [Concomitant]
     Dosage: 40 MG
     Route: 065

REACTIONS (8)
  - ANAEMIA [None]
  - APPARENT LIFE THREATENING EVENT [None]
  - HAEMATOMA [None]
  - HAEMORRHAGE [None]
  - POST PROCEDURAL COMPLICATION [None]
  - RESPIRATORY FAILURE [None]
  - THROMBOCYTOPENIA [None]
  - VASCULAR PSEUDOANEURYSM RUPTURED [None]
